FAERS Safety Report 7048503-8 (Version None)
Quarter: 2010Q4

REPORT INFORMATION
  Report Type: 
  Country: None (occurrence: None)
  Receive Date: 20101007
  Receipt Date: 20100930
  Transmission Date: 20110411
  Serious: Yes (Death)
  Sender: FDA-Public Use
  Company Number: 2010SP052137

PATIENT
  Age: 63 Year
  Sex: Male

DRUGS (6)
  1. REMERON [Suspect]
     Indication: DEPRESSION
     Dosage: 15 MG; QD; PO, 30 MG; QD; PO
     Route: 048
     Dates: start: 20091105, end: 20091111
  2. REMERON [Suspect]
     Indication: DEPRESSION
     Dosage: 15 MG; QD; PO, 30 MG; QD; PO
     Route: 048
     Dates: start: 20091112, end: 20100628
  3. LUVOX [Concomitant]
  4. MYSLEE [Concomitant]
  5. SILECE [Concomitant]
  6. DEPAS [Concomitant]

REACTIONS (3)
  - ALANINE AMINOTRANSFERASE INCREASED [None]
  - COMPLETED SUICIDE [None]
  - TREATMENT NONCOMPLIANCE [None]
